FAERS Safety Report 11467855 (Version 2)
Quarter: 2015Q3

REPORT INFORMATION
  Report Type: Spontaneous
  Country: JP (occurrence: JP)
  Receive Date: 20150908
  Receipt Date: 20150916
  Transmission Date: 20151125
  Serious: Yes (Life-Threatening, Disabling)
  Sender: FDA-Public Use
  Company Number: JP-NOVOPROD-460581

PATIENT
  Age: 52 Year
  Sex: Male
  Weight: 134 kg

DRUGS (20)
  1. NOVORAPID [Suspect]
     Active Substance: INSULIN ASPART
     Indication: LATENT AUTOIMMUNE DIABETES IN ADULTS
     Dosage: 18 IU, QD (6-6-6, POSTPRANDIAL)
     Route: 058
  2. NAUZELIN [Concomitant]
     Active Substance: DOMPERIDONE
     Indication: WOUND COMPLICATION
     Dosage: 270 MG, TID
     Route: 048
     Dates: start: 20150627
  3. OLMETEC [Concomitant]
     Active Substance: OLMESARTAN MEDOXOMIL
     Indication: HYPERTENSION
     Dosage: 20 MG, QD
     Route: 048
     Dates: start: 20150522
  4. EVIPROSTAT N [Concomitant]
     Active Substance: HERBALS
     Indication: DYSURIA
     Dosage: UNK
     Route: 048
  5. TRAMAL [Concomitant]
     Active Substance: TRAMADOL
     Indication: WOUND COMPLICATION
     Dosage: 75 MG, TID
     Route: 048
     Dates: start: 20150627
  6. LEVEMIR [Suspect]
     Active Substance: INSULIN DETEMIR
     Indication: LATENT AUTOIMMUNE DIABETES IN ADULTS
     Dosage: UNK
     Route: 058
     Dates: start: 20150518, end: 2015
  7. LEVEMIR [Suspect]
     Active Substance: INSULIN DETEMIR
     Dosage: 48 IU, QD (24-0-0-24)
     Route: 058
     Dates: start: 20150803, end: 201508
  8. KAMIKIHITO                         /07986501/ [Concomitant]
     Indication: FATIGUE
     Dosage: 7.5 G, TID
     Route: 048
     Dates: start: 20150721
  9. FERROMIA [Concomitant]
     Active Substance: FERROUS CITRATE
     Indication: IRON DEFICIENCY ANAEMIA
     Dosage: 200 MG, BID
     Route: 048
     Dates: start: 20150529
  10. NEUROTROPIN                        /00398601/ [Concomitant]
     Active Substance: CYANOCOBALAMIN\LIDOCAINE HYDROCHLORIDE\PYRIDOXINE HYDROCHLORIDE\THIAMINE HYDROCHLORIDE
     Indication: NEURALGIA
     Dosage: 8 IU, BID
     Route: 048
  11. NOVORAPID [Suspect]
     Active Substance: INSULIN ASPART
     Dosage: 1-6 IU AFTER EACH MEAL
     Route: 058
     Dates: end: 201508
  12. ALOSITOL [Concomitant]
     Active Substance: ALLOPURINOL
     Indication: HYPERURICAEMIA
     Dosage: 100 MG, QD
     Route: 048
  13. BFLUID [Concomitant]
     Active Substance: AMINO ACIDS\DEXTROSE\ELECTROLYTES NOS\VITAMINS
     Dosage: 500ML
     Dates: start: 20150730
  14. LEVEMIR [Suspect]
     Active Substance: INSULIN DETEMIR
     Dosage: 6 IU, QD
     Route: 058
     Dates: start: 20150812
  15. FAMOTIDINE. [Concomitant]
     Active Substance: FAMOTIDINE
     Indication: GASTRIC ULCER
     Dosage: 40 MG, BID
     Route: 048
  16. PHYSIO 35 [Concomitant]
     Active Substance: ELECTROLYTES NOS
     Dosage: 500ML
     Dates: start: 20150730
  17. LEVEMIR [Suspect]
     Active Substance: INSULIN DETEMIR
     Dosage: 20 IU, QD (12-0-0-8)
     Route: 058
     Dates: start: 20150727
  18. ACELIO [Concomitant]
     Active Substance: ACETAMINOPHEN
     Indication: WOUND COMPLICATION
     Dosage: 1000 MG PRN
     Route: 048
     Dates: start: 20150604
  19. TERNELIN [Concomitant]
     Active Substance: TIZANIDINE
     Indication: TENSION HEADACHE
     Dosage: 3 MG, TID
     Route: 048
  20. LIORESAL [Concomitant]
     Active Substance: BACLOFEN
     Indication: QUADRIPARESIS
     Dosage: 30 MG, TID
     Route: 048

REACTIONS (5)
  - Device related infection [Recovered/Resolved]
  - Postoperative wound infection [Recovered/Resolved]
  - Device related infection [Recovered/Resolved]
  - Hypoglycaemia [Recovered/Resolved]
  - Diabetes mellitus inadequate control [Unknown]

NARRATIVE: CASE EVENT DATE: 20150621
